FAERS Safety Report 16221574 (Version 1)
Quarter: 2019Q2

REPORT INFORMATION
  Report Type: Spontaneous
  Country: SI (occurrence: SI)
  Receive Date: 20190422
  Receipt Date: 20190422
  Transmission Date: 20190711
  Serious: Yes (Other)
  Sender: FDA-Public Use
  Company Number: SI-TEVA-2019-SI-1040743

PATIENT
  Age: 62 Year
  Sex: Female

DRUGS (2)
  1. COPAXONE [Suspect]
     Active Substance: GLATIRAMER ACETATE
     Route: 058
     Dates: start: 20180911
  2. ALTASOMIL 100 MG [Concomitant]
     Route: 065

REACTIONS (11)
  - Pain in extremity [Not Recovered/Not Resolved]
  - Headache [Recovered/Resolved]
  - Hyperhidrosis [Unknown]
  - Paraesthesia [Recovered/Resolved]
  - Hyperventilation [Recovered/Resolved]
  - Erythema [Recovered/Resolved]
  - Generalised erythema [Recovered/Resolved]
  - Product administered at inappropriate site [Unknown]
  - Swelling [Unknown]
  - Muscle spasms [Not Recovered/Not Resolved]
  - Nausea [Recovered/Resolved]

NARRATIVE: CASE EVENT DATE: 201902
